FAERS Safety Report 18632043 (Version 1)
Quarter: 2020Q4

REPORT INFORMATION
  Report Type: Spontaneous
  Country: US (occurrence: US)
  Receive Date: 20201218
  Receipt Date: 20201218
  Transmission Date: 20210114
  Serious: No
  Sender: FDA-Public Use
  Company Number: US-LUPIN PHARMACEUTICALS INC.-2020-10172

PATIENT
  Age: 50 Year

DRUGS (6)
  1. PAROXETINE. [Suspect]
     Active Substance: PAROXETINE
     Indication: BRACHIORADIAL PRURITUS
     Dosage: UNK
     Route: 065
  2. PREGABALIN. [Suspect]
     Active Substance: PREGABALIN
     Indication: BRACHIORADIAL PRURITUS
     Dosage: UNK
     Route: 065
  3. APREPITANT. [Suspect]
     Active Substance: APREPITANT
     Indication: BRACHIORADIAL PRURITUS
     Dosage: UNK
     Route: 065
  4. BUTORPHANOL [Concomitant]
     Active Substance: BUTORPHANOL
     Indication: BRACHIORADIAL PRURITUS
     Dosage: 10 MILLIGRAM PER MILLILITRE, PRN (UP TO EVERY 4 HOURS)
     Route: 045
  5. CLOBETASOL [Suspect]
     Active Substance: CLOBETASOL
     Indication: BRACHIORADIAL PRURITUS
     Dosage: UNK
     Route: 065
  6. TRIAMCINOLONE ACETONIDE CREAM [Suspect]
     Active Substance: TRIAMCINOLONE ACETONIDE
     Indication: BRACHIORADIAL PRURITUS
     Dosage: UNK
     Route: 065

REACTIONS (1)
  - Treatment failure [Unknown]
